FAERS Safety Report 18171554 (Version 1)
Quarter: 2020Q3

REPORT INFORMATION
  Report Type: Spontaneous
  Country: IN (occurrence: IN)
  Receive Date: 20200820
  Receipt Date: 20200820
  Transmission Date: 20201103
  Serious: Yes (Hospitalization, Other)
  Sender: FDA-Public Use
  Company Number: IN-GLENMARK PHARMACEUTICALS-2020GMK049080

PATIENT
  Age: 67 Year
  Sex: Female

DRUGS (3)
  1. TELMISARTAN. [Suspect]
     Active Substance: TELMISARTAN
     Indication: HYPERTENSION
     Dosage: 40 MILLIGRAM, QD
     Route: 065
     Dates: start: 20180126, end: 20180207
  2. METOPROLOL. [Suspect]
     Active Substance: METOPROLOL
     Indication: HYPERTENSION
     Dosage: 25 MILLIGRAM, QD
     Route: 065
     Dates: start: 20180110
  3. ACETYLSALICYLIC ACID;CLOPIDOGREL BISULFATE [Suspect]
     Active Substance: ASPIRIN\CLOPIDOGREL BISULFATE
     Indication: HYPERTENSION
     Dosage: UNK
     Route: 065
     Dates: start: 20180110, end: 201802

REACTIONS (8)
  - Mouth ulceration [Recovered/Resolved]
  - Haemorrhage [Recovered/Resolved]
  - Drug hypersensitivity [Recovering/Resolving]
  - Stomatitis [Recovered/Resolved]
  - Chronic gastritis [Unknown]
  - Dysphagia [Recovering/Resolving]
  - Soft tissue injury [Recovered/Resolved]
  - Angioedema [Recovered/Resolved]

NARRATIVE: CASE EVENT DATE: 201801
